FAERS Safety Report 10099521 (Version 2)
Quarter: 2014Q2

REPORT INFORMATION
  Report Type: Spontaneous
  Country: US (occurrence: US)
  Receive Date: 20140423
  Receipt Date: 20140522
  Transmission Date: 20141212
  Serious: Yes (Other)
  Sender: FDA-Public Use
  Company Number: US-EISAI INC-AP356-00641-SPO-US

PATIENT
  Age: 37 Year
  Sex: Female
  Weight: 88 kg

DRUGS (2)
  1. BELVIQ (LORCASERIN HYDROCHLORIDE) [Suspect]
     Indication: OBESITY
     Route: 048
     Dates: start: 20140401, end: 20140402
  2. SYNTHROID [Concomitant]
     Indication: HYPOTHYROIDISM

REACTIONS (7)
  - Hangover [Recovered/Resolved]
  - Depression [Recovered/Resolved]
  - Fatigue [Recovered/Resolved]
  - Feeling cold [Recovered/Resolved]
  - Dissociation [Recovered/Resolved]
  - Feeling abnormal [Recovered/Resolved]
  - Euphoric mood [Recovered/Resolved]
